FAERS Safety Report 7547278-3 (Version None)
Quarter: 2011Q2

REPORT INFORMATION
  Report Type: 
  Country: None (occurrence: None)
  Receive Date: 20110614
  Receipt Date: 20110531
  Transmission Date: 20111010
  Serious: Yes (Hospitalization)
  Sender: FDA-Public Use
  Company Number: JP-UCBSA-031527

PATIENT
  Sex: Male

DRUGS (11)
  1. KEPPRA [Suspect]
     Indication: CONVULSION
     Dosage: ROUTE:VIA GASTRIC TUBE
     Dates: start: 20101109, end: 20101122
  2. CLARITHROMYCIN [Concomitant]
     Indication: BRONCHITIS
     Dosage: ROUTE:VIA GASTRIC TUBE
  3. ONON [Concomitant]
     Indication: BRONCHITIS
     Dosage: ROUTE:VIA GASTRIC TUBE
  4. ZONISAMIDE [Concomitant]
     Indication: EPILEPSY
     Dosage: ROUTE:VIA GASTRIC TUBE
  5. CLONAZEPAM [Concomitant]
     Indication: EPILEPSY
     Dosage: ROUTE:VIA GASTRIC TUBE
  6. PHENOBAL [Concomitant]
     Indication: EPILEPSY
     Dosage: ROUTE:VIA GASTRIC TUBE
  7. KEPPRA [Suspect]
     Indication: EPILEPSY
     Dosage: ROUTE:VIA GASTRIC TUBE
     Dates: start: 20101109, end: 20101122
  8. KEPPRA [Suspect]
     Indication: HYPERTENSION
     Dosage: ROUTE:VIA GASTRIC TUBE
     Dates: start: 20101109, end: 20101122
  9. LEVOTHYROXINE SODIUM [Concomitant]
     Indication: HYPOTHYROIDISM
     Dosage: ROUTE:VIA GASTRIC TUBE
  10. THEO-DUR [Concomitant]
     Indication: BRONCHITIS
     Dosage: ROUTE:VIA GASTRIC TUBE
  11. VALPROIC ACID [Suspect]
     Indication: EPILEPSY
     Dosage: ROUTE:VIA GASTRIC TUBE

REACTIONS (2)
  - RESPIRATORY TRACT INFECTION [None]
  - CHOREOATHETOSIS [None]
